FAERS Safety Report 17047879 (Version 1)
Quarter: 2019Q4

REPORT INFORMATION
  Report Type: Spontaneous
  Country: RO (occurrence: RO)
  Receive Date: 20191119
  Receipt Date: 20191119
  Transmission Date: 20200122
  Serious: Yes (Death)
  Sender: FDA-Public Use
  Company Number: RO-PFIZER INC-2019496959

PATIENT
  Age: 79 Year
  Sex: Female
  Weight: 48 kg

DRUGS (1)
  1. INLYTA [Suspect]
     Active Substance: AXITINIB
     Indication: METASTATIC RENAL CELL CARCINOMA
     Dosage: 1 MG, UNK
     Dates: start: 20190321, end: 20190627

REACTIONS (1)
  - Cardio-respiratory arrest [Fatal]
